FAERS Safety Report 4724767-8 (Version None)
Quarter: 2005Q3

REPORT INFORMATION
  Report Type: 
  Country: None (occurrence: None)
  Receive Date: 20050726
  Receipt Date: 20050715
  Transmission Date: 20060218
  Serious: Yes (Hospitalization)
  Sender: FDA-Public Use
  Company Number: J200502311

PATIENT
  Age: 7 Year
  Sex: Female

DRUGS (1)
  1. SAWACILLIN [Suspect]
     Indication: POST STREPTOCOCCAL GLOMERULONEPHRITIS
     Route: 048
     Dates: start: 20050628, end: 20050707

REACTIONS (3)
  - PYREXIA [None]
  - RASH [None]
  - SPLENOMEGALY [None]
